FAERS Safety Report 6919122-6 (Version None)
Quarter: 2010Q3

REPORT INFORMATION
  Report Type: 
  Country: None (occurrence: None)
  Receive Date: 20100811
  Receipt Date: 20100805
  Transmission Date: 20110219
  Serious: Yes (Hospitalization)
  Sender: FDA-Public Use
  Company Number: US-ROCHE-698133

PATIENT
  Sex: Female

DRUGS (2)
  1. PEGASYS [Suspect]
     Indication: HEPATITIS C
     Dosage: FORM: PRE-FILLED SYRINGE
     Route: 065
     Dates: start: 20100318, end: 20100624
  2. RIBAVIRIN [Suspect]
     Indication: HEPATITIS C
     Route: 065
     Dates: start: 20100318, end: 20100624

REACTIONS (6)
  - ANAEMIA [None]
  - GASTROINTESTINAL HAEMORRHAGE [None]
  - MOOD SWINGS [None]
  - NAUSEA [None]
  - PNEUMONIA [None]
  - VOMITING [None]
